FAERS Safety Report 7453192-4 (Version None)
Quarter: 2011Q2

REPORT INFORMATION
  Report Type: 
  Country: None (occurrence: None)
  Receive Date: 20110502
  Receipt Date: 20110421
  Transmission Date: 20111010
  Serious: Yes (Hospitalization)
  Sender: FDA-Public Use
  Company Number: IT-BAYER-2011-035427

PATIENT
  Age: 51 Year
  Sex: Female

DRUGS (1)
  1. CIPROFLOXACIN [Suspect]
     Indication: COUGH
     Dosage: DAILY DOSE 1000 MG
     Route: 048
     Dates: start: 20110414, end: 20110416

REACTIONS (2)
  - TONGUE OEDEMA [None]
  - LIP OEDEMA [None]
